FAERS Safety Report 10312862 (Version 4)
Quarter: 2014Q3

REPORT INFORMATION
  Report Type: Report from Study
  Country: JP (occurrence: JP)
  Receive Date: 20140718
  Receipt Date: 20140825
  Transmission Date: 20150326
  Serious: Yes (Life-Threatening, Other)
  Sender: FDA-Public Use
  Company Number: JP-TAKEDA-TCI2012A03920

PATIENT
  Age: 69 Year
  Sex: Male
  Weight: 50.4 kg

DRUGS (5)
  1. ALOGLIPTIN [Suspect]
     Active Substance: ALOGLIPTIN
     Indication: TYPE 2 DIABETES MELLITUS
     Dosage: 25 MG, QD
     Route: 048
     Dates: start: 20110620, end: 20111101
  2. MICARDIS [Concomitant]
     Active Substance: TELMISARTAN
     Indication: HYPERTENSION
     Dosage: 20 MG, QD
     Route: 048
     Dates: start: 20111222
  3. ALOGLIPTIN [Suspect]
     Active Substance: ALOGLIPTIN
     Dosage: 12.5 MG, QD
     Route: 048
     Dates: start: 20111102, end: 20120115
  4. ALOGLIPTIN [Suspect]
     Active Substance: ALOGLIPTIN
     Dosage: 25 MG, QD
     Route: 048
     Dates: start: 20120116
  5. METGLUCO [Concomitant]
     Active Substance: METFORMIN HYDROCHLORIDE
     Indication: TYPE 2 DIABETES MELLITUS
     Dosage: 250 MG, BID
     Route: 048
     Dates: start: 20130619

REACTIONS (4)
  - Metastases to lymph nodes [Unknown]
  - Metastases to liver [Unknown]
  - Hypertension [Recovering/Resolving]
  - Lung adenocarcinoma [Unknown]

NARRATIVE: CASE EVENT DATE: 20111202
